FAERS Safety Report 9166794 (Version 1)
Quarter: 2012Q4

REPORT INFORMATION
  Report Type: 
  Country: CH (occurrence: CH)
  Receive Date: 20121112
  Receipt Date: 20121112
  Transmission Date: 20130627
  Serious: Yes (Other)
  Sender: FDA-Public Use
  Company Number: CH-RB-046631-12

PATIENT

DRUGS (1)
  1. BUPRENORPHINE [Suspect]
     Indication: SUBSTANCE ABUSE
     Dosage: Dosing details unknown
     Route: 042

REACTIONS (3)
  - Pancreatitis acute [Unknown]
  - Intentional drug misuse [Unknown]
  - Substance abuse [Unknown]
